FAERS Safety Report 9237870 (Version 3)
Quarter: 2013Q2

REPORT INFORMATION
  Report Type: Spontaneous
  Country: FR (occurrence: None)
  Receive Date: 20130415
  Receipt Date: 20130607
  Transmission Date: 20140414
  Serious: Yes (Hospitalization)
  Sender: FDA-Public Use
  Company Number: ACO_35384_2013

PATIENT
  Age: 50 Year
  Sex: Male

DRUGS (10)
  1. FAMPRIDINE-SR [Suspect]
     Indication: MULTIPLE SCLEROSIS
     Route: 048
     Dates: start: 20120629
  2. LIORESAL (BACLOFEN) [Concomitant]
  3. PLAVIX (CLOPIDOGREL BISULFATE) [Concomitant]
  4. KARDEGIC (ACETYLSALICYLATE LYSINE) [Concomitant]
  5. ALPRAZOLAM (ALPRAZOLAM) [Concomitant]
  6. ZOPICLONE (ZOPICLONE) [Concomitant]
  7. PANTOPRAZOLE (PANTOPRAZOLE) [Concomitant]
  8. RIVOTRIL (CLONAZEPAM) [Concomitant]
  9. JOSIR (TAMSULOSIN HYDROCHLORIDE) [Concomitant]
  10. VITAMIN D (COLECALCIFEROL) [Concomitant]

REACTIONS (3)
  - Microcytic anaemia [None]
  - Iron deficiency [None]
  - Melaena [None]
